FAERS Safety Report 5500151-4 (Version None)
Quarter: 2007Q4

REPORT INFORMATION
  Report Type: 
  Country: None (occurrence: None)
  Receive Date: 20071025
  Receipt Date: 20071019
  Transmission Date: 20080405
  Serious: Yes (Hospitalization)
  Sender: FDA-Public Use
  Company Number: 2007SP005200

PATIENT
  Age: 83 Year
  Sex: Male

DRUGS (17)
  1. IMDUR [Suspect]
     Indication: DRUG USE FOR UNKNOWN INDICATION
     Dosage: 60 MG; QD;, 120 MG; QD;, 60 MG; QD;
     Dates: start: 20070115, end: 20070301
  2. IMDUR [Suspect]
     Indication: DRUG USE FOR UNKNOWN INDICATION
     Dosage: 60 MG; QD;, 120 MG; QD;, 60 MG; QD;
     Dates: start: 20060101
  3. IMDUR [Suspect]
     Indication: DRUG USE FOR UNKNOWN INDICATION
     Dosage: 60 MG; QD;, 120 MG; QD;, 60 MG; QD;
     Dates: start: 20070301
  4. GEN-NITRO (GLYCERYL TRINITRATE) [Suspect]
     Indication: DRUG USE FOR UNKNOWN INDICATION
     Dosage: ; SL
     Route: 060
  5. ATACAND [Concomitant]
  6. METOPROLOL [Concomitant]
  7. FUROSEMIDE [Concomitant]
  8. NORVASC [Concomitant]
  9. PLAVIX [Concomitant]
  10. OMEPRAZOLE MAGNESIUM [Concomitant]
  11. ASPIRIN [Concomitant]
  12. COLACE [Concomitant]
  13. ACETAMINOPHEN [Concomitant]
  14. LIPITOR [Concomitant]
  15. NPH INSULIN [Concomitant]
  16. MORPHINE [Concomitant]
  17. TYLENOL (CAPLET) [Concomitant]

REACTIONS (3)
  - BLOOD GLUCOSE INCREASED [None]
  - HALLUCINATION [None]
  - TINNITUS [None]
